FAERS Safety Report 14008122 (Version 1)
Quarter: 2017Q3

REPORT INFORMATION
  Report Type: Spontaneous
  Country: CH (occurrence: CH)
  Receive Date: 20170925
  Receipt Date: 20170925
  Transmission Date: 20171128
  Serious: Yes (Hospitalization)
  Sender: FDA-Public Use
  Company Number: CH-TEVA-806974ISR

PATIENT
  Sex: Male

DRUGS (7)
  1. CEFEPIM SANDOZ [Suspect]
     Active Substance: CEFEPIME HYDROCHLORIDE
     Route: 051
     Dates: start: 201707, end: 201707
  2. IRFEN -600 RETARD RETARDTABLETTEN [Suspect]
     Active Substance: IBUPROFEN
     Route: 048
  3. ATORVASTATIN [Concomitant]
     Active Substance: ATORVASTATIN
  4. ASPIRIN CARDIO [Concomitant]
     Active Substance: ASPIRIN
  5. LYRICA [Concomitant]
     Active Substance: PREGABALIN
  6. TOREM [Concomitant]
     Active Substance: TORSEMIDE
  7. LIQUEMIN [Concomitant]
     Active Substance: HEPARIN SODIUM

REACTIONS (2)
  - Tremor [Recovered/Resolved]
  - Acute kidney injury [Recovering/Resolving]

NARRATIVE: CASE EVENT DATE: 201707
